FAERS Safety Report 10741420 (Version 4)
Quarter: 2016Q4

REPORT INFORMATION
  Report Type: Spontaneous
  Country: US (occurrence: US)
  Receive Date: 20150127
  Receipt Date: 20161021
  Transmission Date: 20170206
  Serious: Yes (Other)
  Sender: FDA-Public Use
  Company Number: US-ASTRAZENECA-2015SE05755

PATIENT
  Age: 32269 Day
  Sex: Male
  Weight: 71.2 kg

DRUGS (17)
  1. SYMBICORT [Suspect]
     Active Substance: BUDESONIDE\FORMOTEROL FUMARATE DIHYDRATE
     Indication: ASTHMA
     Dosage: 80/4.5 UG, 2 PUFFS TWO TIMES A DAY
     Route: 055
     Dates: start: 201501
  2. TAMSULOSIN [Concomitant]
     Active Substance: TAMSULOSIN
     Indication: PROSTATIC DISORDER
     Route: 048
     Dates: start: 2013
  3. METAMUCIL [Concomitant]
     Active Substance: PLANTAGO SEED
     Indication: FUNCTIONAL GASTROINTESTINAL DISORDER
     Route: 048
  4. STOOL SOFTENER (DOCUSATE CALCIUM) [Concomitant]
     Active Substance: DOCUSATE CALCIUM
     Indication: FUNCTIONAL GASTROINTESTINAL DISORDER
     Route: 048
     Dates: start: 2012
  5. NASONEX [Concomitant]
     Active Substance: MOMETASONE FUROATE
     Indication: MULTIPLE ALLERGIES
     Route: 045
     Dates: start: 2011
  6. NASONEX [Concomitant]
     Active Substance: MOMETASONE FUROATE
     Indication: SINUS DISORDER
     Route: 045
     Dates: start: 2011
  7. SYNTHROID [Concomitant]
     Active Substance: LEVOTHYROXINE SODIUM
     Indication: THYROID DISORDER
     Route: 048
     Dates: start: 2005
  8. VITAMIN D [Concomitant]
     Active Substance: CHOLECALCIFEROL
     Indication: GENERAL PHYSICAL HEALTH DETERIORATION
     Route: 048
     Dates: start: 2011
  9. METAMUCIL [Concomitant]
     Active Substance: PLANTAGO SEED
     Indication: DIVERTICULITIS
     Route: 048
  10. IRON [Concomitant]
     Active Substance: IRON
     Indication: BLOOD IRON DECREASED
     Route: 048
     Dates: start: 2014
  11. ATORVASTATIN [Concomitant]
     Active Substance: ATORVASTATIN
     Indication: BLOOD CHOLESTEROL ABNORMAL
     Route: 048
  12. ZANTAC [Concomitant]
     Active Substance: RANITIDINE HYDROCHLORIDE
     Route: 048
  13. LIALDA [Concomitant]
     Active Substance: MESALAMINE
     Indication: FUNCTIONAL GASTROINTESTINAL DISORDER
     Route: 048
     Dates: start: 2013
  14. ATORVASTATIN [Concomitant]
     Active Substance: ATORVASTATIN
     Indication: CARDIAC DISORDER
     Route: 048
  15. FLORASTOR [Concomitant]
     Active Substance: SACCHAROMYCES CEREVISIAE
     Indication: FUNCTIONAL GASTROINTESTINAL DISORDER
     Dosage: TWO TIMES A DAY
     Route: 048
     Dates: start: 2012
  16. SYMBICORT [Suspect]
     Active Substance: BUDESONIDE\FORMOTEROL FUMARATE DIHYDRATE
     Indication: CHRONIC OBSTRUCTIVE PULMONARY DISEASE
     Dosage: 80/4.5 UG, 2 PUFFS TWO TIMES A DAY
     Route: 055
     Dates: start: 201501
  17. AMLODIPINE [Concomitant]
     Active Substance: AMLODIPINE BESYLATE
     Indication: CARDIAC DISORDER
     Route: 048

REACTIONS (7)
  - Dizziness [Unknown]
  - Dysphonia [Not Recovered/Not Resolved]
  - Leukaemia [Unknown]
  - Candida infection [Unknown]
  - Off label use [Recovering/Resolving]
  - Muscular weakness [Recovered/Resolved]
  - Drug dose omission [Unknown]

NARRATIVE: CASE EVENT DATE: 20150116
